FAERS Safety Report 14482983 (Version 2)
Quarter: 2018Q4

REPORT INFORMATION
  Report Type: Spontaneous
  Country: IT (occurrence: IT)
  Receive Date: 20180203
  Receipt Date: 20181229
  Transmission Date: 20190204
  Serious: Yes (Hospitalization, Other)
  Sender: FDA-Public Use
  Company Number: IT-AUROBINDO-AUR-APL-2018-004398

PATIENT
  Age: 24 Year
  Sex: Male

DRUGS (2)
  1. ARIPIPRAZOLE TABLETS [Suspect]
     Active Substance: ARIPIPRAZOLE
     Indication: PRODUCT USED FOR UNKNOWN INDICATION
     Dosage: IN TOTAL
     Route: 048
     Dates: start: 20180102, end: 20180102
  2. DIAZEPAM ORAL DROPS SOLUTION [Suspect]
     Active Substance: DIAZEPAM
     Indication: PRODUCT USED FOR UNKNOWN INDICATION
     Dosage: IN TOTAL
     Route: 048
     Dates: start: 20180102, end: 20180102

REACTIONS (3)
  - Sopor [Recovered/Resolved]
  - Drug abuse [Recovered/Resolved]
  - Suicide attempt [Recovered/Resolved]

NARRATIVE: CASE EVENT DATE: 20180102
